FAERS Safety Report 6433663-X (Version None)
Quarter: 2009Q4

REPORT INFORMATION
  Report Type: 
  Country: None (occurrence: None)
  Receive Date: 20091110
  Receipt Date: 20091030
  Transmission Date: 20100525
  Serious: Yes (Other)
  Sender: FDA-Public Use
  Company Number: US-NOVOPROD-289100

PATIENT
  Sex: Female
  Weight: 98.413 kg

DRUGS (6)
  1. NORDITROPIN NORDIFLEX [Suspect]
     Indication: GROWTH HORMONE DEFICIENCY
     Dosage: 0.4 MG, QD
     Route: 058
     Dates: start: 20090327, end: 20090707
  2. VITAMIN A [Concomitant]
     Indication: VITAMIN D DEFICIENCY
  3. SINGULAIR [Concomitant]
     Dosage: 10 MG, QD (AT NIGHT)
  4. CALTRATE + D                       /00944201/ [Concomitant]
     Dosage: 6000 UNK, BID
  5. ZYRTEC [Concomitant]
     Dosage: 10 MG, QD (EVERY NIGHT)
  6. SKELAXIN [Concomitant]
     Dosage: 800 MG, TID (PRN)

REACTIONS (1)
  - MENINGIOMA [None]
